FAERS Safety Report 7162854-8 (Version None)
Quarter: 2010Q4

REPORT INFORMATION
  Report Type: 
  Country: None (occurrence: None)
  Receive Date: 20101215
  Receipt Date: 20100104
  Transmission Date: 20110411
  Serious: Yes (Other)
  Sender: FDA-Public Use
  Company Number: SE-PFIZER INC-2009302949

PATIENT
  Age: 17 Year
  Sex: Female

DRUGS (7)
  1. LYRICA [Suspect]
     Indication: GENERALISED ANXIETY DISORDER
     Dosage: 75 MG, 2X/DAY
     Route: 048
     Dates: start: 20090910, end: 20091201
  2. LYRICA [Suspect]
     Indication: AFFECT LABILITY
  3. LYRICA [Suspect]
     Indication: BORDERLINE PERSONALITY DISORDER
  4. LAMICTAL [Interacting]
     Indication: AFFECT LABILITY
     Dosage: 150 MG, 1X/DAY
     Route: 048
     Dates: start: 20090301
  5. LAMICTAL [Interacting]
     Indication: BORDERLINE PERSONALITY DISORDER
  6. LAMICTAL [Interacting]
     Indication: GENERALISED ANXIETY DISORDER
  7. LAMICTAL [Interacting]
     Indication: BIPOLAR DISORDER

REACTIONS (3)
  - DRUG INTERACTION [None]
  - MYOCLONUS [None]
  - PANIC ATTACK [None]
